FAERS Safety Report 20441347 (Version 3)
Quarter: 2022Q2

REPORT INFORMATION
  Report Type: Report from Study
  Country: AR (occurrence: AR)
  Receive Date: 20220208
  Receipt Date: 20220401
  Transmission Date: 20220721
  Serious: Yes (Other)
  Sender: FDA-Public Use
  Company Number: AR-PUMA BIOTECHNOLOGY, INC.-2021-PUM-AR004904

PATIENT

DRUGS (5)
  1. NERLYNX [Suspect]
     Active Substance: NERATINIB
     Indication: Breast cancer metastatic
     Dosage: 240 MG, DAILY
     Route: 048
     Dates: start: 20210804, end: 20220315
  2. CAPECITABINE [Suspect]
     Active Substance: CAPECITABINE
     Indication: Product used for unknown indication
     Dosage: FOR 14 DAYS, FOR A WEEK AND THEN REST IN BETWEEN
     Route: 065
     Dates: start: 20210906
  3. CAPECITABINE [Suspect]
     Active Substance: CAPECITABINE
     Dosage: UNK
     Route: 065
  4. CAPECITABINE [Suspect]
     Active Substance: CAPECITABINE
     Dosage: UNK
     Route: 065
     Dates: start: 20220102, end: 20220125
  5. LOPERAMIDE [Concomitant]
     Active Substance: LOPERAMIDE
     Indication: Product used for unknown indication
     Dosage: 1 DF IN THE MORNING AND THEN AS NECESSARY
     Route: 065

REACTIONS (14)
  - Disease progression [Not Recovered/Not Resolved]
  - Hypotension [Unknown]
  - Movement disorder [Unknown]
  - Glare [Unknown]
  - Bradykinesia [Unknown]
  - Daydreaming [Unknown]
  - Dizziness [Unknown]
  - Vision blurred [Unknown]
  - Photopsia [Unknown]
  - Pneumonia [Not Recovered/Not Resolved]
  - Agitation [Unknown]
  - Chest discomfort [Unknown]
  - Respiratory distress [Not Recovered/Not Resolved]
  - Skin toxicity [Unknown]

NARRATIVE: CASE EVENT DATE: 20211001
